FAERS Safety Report 17845862 (Version 1)
Quarter: 2020Q2

REPORT INFORMATION
  Report Type: Spontaneous
  Country: US (occurrence: US)
  Receive Date: 20200530
  Receipt Date: 20200530
  Transmission Date: 20200714
  Serious: Yes (Disabling)
  Sender: FDA-Public Use
  Company Number: None

PATIENT
  Age: 46 Year
  Sex: Female
  Weight: 60.75 kg

DRUGS (5)
  1. GROUND FLAX SEED [Concomitant]
  2. MULTI-VITAMIN [Concomitant]
     Active Substance: .ALPHA.-TOCOPHEROL ACETATE, DL-\ASCORBIC ACID\CYANOCOBALAMIN\FLUORIDE ION\FOLIC ACID\NIACIN\PYRIDOXINE\RIBOFLAVIN\THIAMINE\VITAMIN A\VITAMIN D
  3. GLUCOSAMINE-CHONDROITIN-MSM [Concomitant]
  4. ZYRTEC ALLERGY [Suspect]
     Active Substance: CETIRIZINE HYDROCHLORIDE
     Indication: SEASONAL ALLERGY
     Route: 048
     Dates: start: 20200314, end: 20200524
  5. FISH OIL SUPPLEMENT [Concomitant]
     Active Substance: FISH OIL

REACTIONS (4)
  - Lethargy [None]
  - Sinus headache [None]
  - Pruritus [None]
  - Abdominal discomfort [None]

NARRATIVE: CASE EVENT DATE: 20200525
